FAERS Safety Report 18406331 (Version 1)
Quarter: 2020Q4

REPORT INFORMATION
  Report Type: Spontaneous
  Country: US (occurrence: US)
  Receive Date: 20201020
  Receipt Date: 20201020
  Transmission Date: 20210114
  Serious: Yes (Other)
  Sender: FDA-Public Use
  Company Number: US-PURDUE-USA-2020-0171501

PATIENT
  Sex: Male

DRUGS (1)
  1. OXYCONTIN [Suspect]
     Active Substance: OXYCODONE HYDROCHLORIDE
     Indication: PAIN
     Dosage: UNK
     Route: 048

REACTIONS (9)
  - Hypoxia [Unknown]
  - Abnormal behaviour [Unknown]
  - Drug withdrawal syndrome [Unknown]
  - Cerebrovascular accident [Unknown]
  - Emotional distress [Unknown]
  - Pain [Unknown]
  - Overdose [Unknown]
  - Hyperaesthesia [Unknown]
  - Drug dependence [Unknown]
